FAERS Safety Report 9355412 (Version 1)
Quarter: 2013Q2

REPORT INFORMATION
  Report Type: Spontaneous
  Country: US (occurrence: US)
  Receive Date: 20130619
  Receipt Date: 20130619
  Transmission Date: 20140414
  Serious: No
  Sender: FDA-Public Use
  Company Number: US-BAYER-2013-074714

PATIENT
  Age: 48 Year
  Sex: Male

DRUGS (1)
  1. GADAVIST [Suspect]
     Indication: NUCLEAR MAGNETIC RESONANCE IMAGING BRAIN
     Dosage: 6 ML, ONCE
     Route: 042
     Dates: start: 20130505, end: 20130505

REACTIONS (2)
  - Dyspepsia [None]
  - Nausea [None]
